FAERS Safety Report 13559395 (Version 1)
Quarter: 2017Q2

REPORT INFORMATION
  Report Type: Spontaneous
  Country: KR (occurrence: KR)
  Receive Date: 20170518
  Receipt Date: 20170518
  Transmission Date: 20170830
  Serious: Yes (Other)
  Sender: FDA-Public Use
  Company Number: KR-MYLANLABS-2017M1029788

PATIENT

DRUGS (15)
  1. NITROUS OXIDE. [Concomitant]
     Active Substance: NITROUS OXIDE
     Indication: MAINTENANCE OF ANAESTHESIA
     Dosage: 50% WITH THE FRESH GAS FLOW SET
     Route: 065
  2. ROPIVACAINE [Suspect]
     Active Substance: ROPIVACAINE
     Indication: PAIN MANAGEMENT
     Dosage: 1MG
     Route: 042
  3. ROPIVACAINE [Suspect]
     Active Substance: ROPIVACAINE
     Dosage: 0.2%; 10ML, BOLUS INJECTED THROUGH THE CATHETER
     Route: 050
  4. ROPIVACAINE [Suspect]
     Active Substance: ROPIVACAINE
     Dosage: 0.2% AT A BOLUS INFUSION OF 3ML
     Route: 050
  5. DESFLURANE. [Concomitant]
     Active Substance: DESFLURANE
     Indication: MAINTENANCE OF ANAESTHESIA
     Dosage: 6%-7% WITH THE FRESH GAS FLOW SET
     Route: 065
  6. ROPIVACAINE [Suspect]
     Active Substance: ROPIVACAINE
     Dosage: 0.2% AT A CONTINUOUS INFUSION OF 5 ML
     Route: 050
  7. LIDOCAINE. [Concomitant]
     Active Substance: LIDOCAINE
     Indication: PRODUCT USED FOR UNKNOWN INDICATION
     Dosage: 50 MICROG
     Route: 065
  8. OXYGEN. [Concomitant]
     Active Substance: OXYGEN
     Indication: MAINTENANCE OF ANAESTHESIA
     Dosage: WITH THE FRESH GAS FLOW SET
     Route: 065
  9. ROPIVACAINE [Suspect]
     Active Substance: ROPIVACAINE
     Dosage: 0.2%; 10ML, BOLUS
     Route: 050
  10. PROPOFOL. [Concomitant]
     Active Substance: PROPOFOL
     Indication: GENERAL ANAESTHESIA
     Dosage: 80MG
     Route: 065
  11. ROCURONIUM BROMIDE. [Concomitant]
     Active Substance: ROCURONIUM BROMIDE
     Indication: GENERAL ANAESTHESIA
     Dosage: 40MG
     Route: 065
  12. ROPIVACAINE [Suspect]
     Active Substance: ROPIVACAINE
     Dosage: 0.2%; 10ML, BOLUS INJECTED THROUGH THE CATHETER
     Route: 050
  13. FENTANYL. [Concomitant]
     Active Substance: FENTANYL
     Indication: PRODUCT USED FOR UNKNOWN INDICATION
     Dosage: 50 MICROG
     Route: 042
  14. LIDOCAINE. [Concomitant]
     Active Substance: LIDOCAINE
     Indication: GENERAL ANAESTHESIA
     Dosage: 40MG
     Route: 065
  15. ROPIVACAINE [Suspect]
     Active Substance: ROPIVACAINE
     Dosage: 0.2%; 10ML, BOLUS
     Route: 050

REACTIONS (2)
  - Aspiration [Recovering/Resolving]
  - Vocal cord paresis [Recovering/Resolving]
